FAERS Safety Report 7222093-9 (Version None)
Quarter: 2011Q1

REPORT INFORMATION
  Report Type: 
  Country: None (occurrence: None)
  Receive Date: 20110103
  Receipt Date: 20101216
  Transmission Date: 20110831
  Serious: Yes (Hospitalization)
  Sender: FDA-Public Use
  Company Number: 2010003425

PATIENT
  Age: 70 Year
  Sex: Female

DRUGS (8)
  1. GENTAMICIN SULFATE [Concomitant]
  2. SELBEX (TEPRENONE) [Concomitant]
  3. LOXONIN (LOXOPROFEN SODIUM) [Concomitant]
  4. TAKEPRON (LANSOPRAZOLE) [Concomitant]
  5. ERLOTINIB HYDROCHLORIDE [Suspect]
     Indication: LUNG ADENOCARCINOMA
     Dosage: (150 MG, QD), ORAL
     Route: 048
     Dates: start: 20090317, end: 20100315
  6. ALFAROL (ALFACALCIDOL) [Concomitant]
  7. BACTRIM [Concomitant]
  8. DECADRON [Concomitant]

REACTIONS (9)
  - DECREASED APPETITE [None]
  - BLOOD CORTISOL [None]
  - MALAISE [None]
  - VOMITING [None]
  - LUNG ADENOCARCINOMA [None]
  - PITUITARY TUMOUR BENIGN [None]
  - DIARRHOEA [None]
  - BLOOD CORTISOL DECREASED [None]
  - RASH [None]
